FAERS Safety Report 8743297 (Version 3)
Quarter: 2012Q4

REPORT INFORMATION
  Report Type: Report from Study
  Country: US (occurrence: US)
  Receive Date: 20120824
  Receipt Date: 20121002
  Transmission Date: 20130627
  Serious: Yes (Other)
  Sender: FDA-Public Use
  Company Number: US-ABBOTT-12P-163-0969551-00

PATIENT
  Age: 37 Year
  Sex: Female

DRUGS (9)
  1. HUMIRA 40 MG/0.8 ML PEN [Suspect]
     Indication: CROHN^S DISEASE
     Dates: start: 201206
  2. LOSARTAN [Concomitant]
     Indication: HYPERTENSION
     Dosage: 100 mg daily
  3. COREG [Concomitant]
     Indication: HYPERTENSION
  4. SPIRONOLACTONE [Concomitant]
     Indication: CONGENITAL CYSTIC KIDNEY DISEASE
     Dosage: 25 mg daily
  5. POTASSIUM [Concomitant]
     Indication: CROHN^S DISEASE
     Dosage: 1 TBS daily
  6. CALCIUM [Concomitant]
     Indication: CROHN^S DISEASE
     Dosage: Daily
  7. VITAMIN D [Concomitant]
     Indication: CROHN^S DISEASE
     Dosage: Daily
  8. VITAMIN B12 [Concomitant]
     Indication: CROHN^S DISEASE
  9. VITAMIN C [Concomitant]
     Indication: VITAMIN SUPPLEMENTATION

REACTIONS (7)
  - Blood potassium decreased [Recovered/Resolved]
  - Diarrhoea [Not Recovered/Not Resolved]
  - Infection [Unknown]
  - Neck mass [Recovered/Resolved]
  - Cystitis [Unknown]
  - Pyrexia [Unknown]
  - Cystitis [Unknown]
